FAERS Safety Report 5497929-2 (Version None)
Quarter: 2007Q4

REPORT INFORMATION
  Report Type: 
  Country: None (occurrence: None)
  Receive Date: 20071018
  Receipt Date: 20070813
  Transmission Date: 20080405
  Serious: Yes (Death, Other)
  Sender: FDA-Public Use
  Company Number: USA-2007-0028777

PATIENT
  Age: 14 Month
  Sex: Male

DRUGS (5)
  1. HYDROMORPHONE HCL [Suspect]
     Indication: DRUG USE FOR UNKNOWN INDICATION
  2. OXYCODONE HCL [Suspect]
     Indication: DRUG USE FOR UNKNOWN INDICATION
  3. MORPHINE [Suspect]
     Indication: DRUG USE FOR UNKNOWN INDICATION
  4. HEROIN                                 (DIAMORPHINE) [Suspect]
     Indication: DRUG USE FOR UNKNOWN INDICATION
  5. OLANZAPINE [Suspect]
     Indication: DRUG USE FOR UNKNOWN INDICATION

REACTIONS (2)
  - OVERDOSE [None]
  - UNRESPONSIVE TO STIMULI [None]
